FAERS Safety Report 7044952-2 (Version None)
Quarter: 2010Q4

REPORT INFORMATION
  Report Type: 
  Country: None (occurrence: None)
  Receive Date: 20101014
  Receipt Date: 20101005
  Transmission Date: 20110411
  Serious: Yes (Hospitalization)
  Sender: FDA-Public Use
  Company Number: PHHY2010US66666

PATIENT
  Sex: Male

DRUGS (15)
  1. STALEVO 100 [Suspect]
     Indication: PARKINSON'S DISEASE
     Dosage: UNK
  2. STALEVO 100 [Suspect]
     Dosage: 150 MG, 7QD
  3. STALEVO 100 [Suspect]
     Dosage: 150 MG, 5QD
  4. STALEVO 100 [Suspect]
     Dosage: 150 MG, Q6H
  5. COUMADIN [Suspect]
     Dosage: UNK
  6. IMDUR [Suspect]
     Dosage: UNK
  7. AMANTADINE HYDROCHLORIDE [Suspect]
     Dosage: UNK
  8. AVASIMIBE [Suspect]
     Dosage: UNK
  9. DOXAZOSIN MESYLATE [Concomitant]
     Dosage: UNK
  10. METOPROLOL [Concomitant]
     Dosage: 50 MG, UNK
  11. PRAVASTATIN [Concomitant]
     Dosage: 40 MG, UNK
  12. AMIODARONE HCL [Concomitant]
     Dosage: 200 MG, UNK
  13. ASPIRIN [Concomitant]
     Dosage: UNK
  14. FISH OIL [Concomitant]
     Dosage: UNK
  15. VITAMINS [Concomitant]
     Dosage: UNK

REACTIONS (6)
  - ABNORMAL BEHAVIOUR [None]
  - CARDIAC DISORDER [None]
  - DYSPHAGIA [None]
  - HAEMORRHAGE [None]
  - MEMORY IMPAIRMENT [None]
  - SPEECH DISORDER [None]
